FAERS Safety Report 5343049-7 (Version None)
Quarter: 2007Q2

REPORT INFORMATION
  Report Type: 
  Country: None (occurrence: None)
  Receive Date: 20070416
  Receipt Date: 20070221
  Transmission Date: 20071010
  Serious: No
  Sender: FDA-Public Use
  Company Number: 2007SP000571

PATIENT
  Age: 33 Year
  Sex: Female
  Weight: 81.1939 kg

DRUGS (4)
  1. LUNESTA [Suspect]
     Indication: INSOMNIA
     Dosage: 3 MG;ORAL
     Route: 048
     Dates: start: 20060801, end: 20060801
  2. DURAGESIC-100 [Concomitant]
  3. ZYRTEC [Concomitant]
  4. CYMBALTA [Concomitant]

REACTIONS (1)
  - DYSGEUSIA [None]
